FAERS Safety Report 4524884-1 (Version None)
Quarter: 2004Q4

REPORT INFORMATION
  Report Type: 
  Country: None (occurrence: None)
  Receive Date: 20041117
  Receipt Date: 20040218
  Transmission Date: 20050328
  Serious: Yes (Other)
  Sender: FDA-Public Use
  Company Number: 2004S1000541

PATIENT
  Age: 20 Year
  Sex: Female

DRUGS (2)
  1. CLOZAPINE [Suspect]
     Indication: SCHIZOAFFECTIVE DISORDER
     Dosage: 25NG Q, HS, THEN 50MG QD, ORAL
     Route: 048
     Dates: start: 20041003, end: 20040218
  2. CLOZAPINE [Suspect]
     Dosage: 100MG Q, HS, ORAL
     Route: 048
     Dates: start: 20041003, end: 20040218

REACTIONS (1)
  - LEUKOPENIA [None]
